FAERS Safety Report 16624827 (Version 6)
Quarter: 2019Q4

REPORT INFORMATION
  Report Type: Report from Study
  Country: CH (occurrence: CH)
  Receive Date: 20190724
  Receipt Date: 20191012
  Transmission Date: 20200122
  Serious: Yes (Life-Threatening, Other)
  Sender: FDA-Public Use
  Company Number: CH-ROCHE-2357452

PATIENT
  Age: 72 Year
  Sex: Male
  Weight: 74 kg

DRUGS (29)
  1. VENETOCLAX. [Suspect]
     Active Substance: VENETOCLAX
     Indication: CHRONIC LYMPHOCYTIC LEUKAEMIA
     Dosage: LAST DOSE: 12/JUL/2019?ON ON 18/OCT/2019, HE RECEIVED LAST DOSE OF VENETOCLAX 200 PRIOR TO SERIOUS A
     Route: 048
     Dates: start: 20181016, end: 20190815
  2. VALTREX [Concomitant]
     Active Substance: VALACYCLOVIR HYDROCHLORIDE
     Route: 048
     Dates: start: 20180918
  3. MUCOFLUID [MESNA] [Concomitant]
  4. ESMERON [Concomitant]
     Active Substance: ROCURONIUM BROMIDE
     Route: 065
     Dates: start: 20190819, end: 20190819
  5. AMIODARONE [Concomitant]
     Active Substance: AMIODARONE
     Route: 065
     Dates: start: 20190311
  6. CORDARONE [Concomitant]
     Active Substance: AMIODARONE HYDROCHLORIDE
     Route: 048
     Dates: start: 20190311
  7. ASPIRIN CARDIO [Concomitant]
     Active Substance: ASPIRIN
     Dosage: POST SURGERY
     Route: 048
  8. FERRUM HAUSMANN FORT [Concomitant]
     Route: 065
     Dates: start: 20190109
  9. DAFALGAN [Concomitant]
     Active Substance: ACETAMINOPHEN
     Route: 048
     Dates: start: 20190820
  10. NOVALGIN (METAMIZOLE SODIUM) [Concomitant]
     Active Substance: METAMIZOLE SODIUM
     Route: 042
     Dates: start: 20190819
  11. BACTRIM [Concomitant]
     Active Substance: SULFAMETHOXAZOLE\TRIMETHOPRIM
     Dosage: POST SURGERY
     Route: 048
     Dates: start: 20180918
  12. LAXOBERON [Concomitant]
     Active Substance: SODIUM PICOSULFATE
     Route: 011
     Dates: start: 20190109
  13. IRON [Concomitant]
     Active Substance: IRON
  14. ONDANSETRON [Concomitant]
     Active Substance: ONDANSETRON
     Route: 042
  15. PHENYLEPHRINE [Concomitant]
     Active Substance: PHENYLEPHRINE HYDROCHLORIDE
     Route: 042
     Dates: start: 20190819, end: 20190819
  16. OBINUTUZUMAB. [Suspect]
     Active Substance: OBINUTUZUMAB
     Indication: CHRONIC LYMPHOCYTIC LEUKAEMIA
     Dosage: LAST DOSE PRIOR TO SAE 01/APR/2019: 1000 MG PRIOR TO EVENT.
     Route: 042
     Dates: start: 20180918, end: 20190402
  17. IRON [Concomitant]
     Active Substance: IRON
     Route: 065
     Dates: start: 20190109
  18. FENTANYL. [Concomitant]
     Active Substance: FENTANYL
     Route: 042
     Dates: start: 20190819, end: 20190819
  19. EPHEDRINE. [Concomitant]
     Active Substance: EPHEDRINE
     Route: 065
     Dates: start: 20190819, end: 20190819
  20. PROPOFOL. [Concomitant]
     Active Substance: PROPOFOL
     Route: 042
     Dates: start: 20190819, end: 20190819
  21. CLEXANE [Concomitant]
     Active Substance: ENOXAPARIN SODIUM
     Route: 065
     Dates: start: 20190819, end: 20190916
  22. NOREPINEPHRINE. [Concomitant]
     Active Substance: NOREPINEPHRINE
     Route: 042
     Dates: start: 20190819, end: 20190819
  23. PALLADONE [Concomitant]
     Active Substance: HYDROMORPHONE HYDROCHLORIDE
     Route: 042
     Dates: start: 20190819, end: 20190819
  24. SODIUM PICOSULFATE [Concomitant]
     Active Substance: SODIUM PICOSULFATE
  25. GARAMYCIN [Concomitant]
     Active Substance: GENTAMICIN SULFATE
     Route: 042
     Dates: start: 20190819, end: 20190819
  26. NEOSTIGMINE. [Concomitant]
     Active Substance: NEOSTIGMINE METHYLSULFATE
     Route: 065
     Dates: start: 20190819, end: 20190819
  27. METRONIDAZOLE. [Concomitant]
     Active Substance: METRONIDAZOLE
     Route: 042
     Dates: start: 20190819, end: 20190819
  28. LIDOCAINE. [Concomitant]
     Active Substance: LIDOCAINE
     Route: 042
     Dates: start: 20190819, end: 20190819
  29. IBRUTINIB [Suspect]
     Active Substance: IBRUTINIB
     Indication: CHRONIC LYMPHOCYTIC LEUKAEMIA
     Dosage: LAST DOSE 12/JUL/2019?ON 13/AUG/2019, HE RECEIVED LAST DOSE OF IBRUTINIB 240 MG PRIOR TO SERIOUS ADV
     Route: 048
     Dates: start: 20180918, end: 20190814

REACTIONS (3)
  - Colon cancer [Recovered/Resolved]
  - Bronchitis [Not Recovered/Not Resolved]
  - Squamous cell carcinoma [Recovered/Resolved]

NARRATIVE: CASE EVENT DATE: 20190709
